FAERS Safety Report 6932093-1 (Version None)
Quarter: 2010Q3

REPORT INFORMATION
  Report Type: 
  Country: None (occurrence: None)
  Receive Date: 20100819
  Receipt Date: 20100806
  Transmission Date: 20110219
  Serious: Yes (Hospitalization)
  Sender: FDA-Public Use
  Company Number: A0862622A

PATIENT
  Age: 48 Year
  Sex: Male
  Weight: 127.3 kg

DRUGS (8)
  1. AVANDIA [Suspect]
     Dosage: 4MG PER DAY
     Route: 048
     Dates: start: 20020101
  2. AVANDAMET [Suspect]
     Route: 048
     Dates: start: 20051108
  3. LOPRESSOR [Concomitant]
  4. HYDRALAZINE [Concomitant]
  5. GLUCOTROL [Concomitant]
  6. GLUCOPHAGE [Concomitant]
  7. HYDROCHLOROTHIAZIDE [Concomitant]
  8. ZOCOR [Concomitant]

REACTIONS (5)
  - CARDIAC DISORDER [None]
  - CARDIOMEGALY [None]
  - DYSPNOEA [None]
  - HYPERTENSION [None]
  - LUNG DISORDER [None]
